FAERS Safety Report 10430193 (Version 1)
Quarter: 2014Q3

REPORT INFORMATION
  Report Type: Spontaneous
  Country: US (occurrence: None)
  Receive Date: 20140903
  Receipt Date: 20140903
  Transmission Date: 20150326
  Serious: Yes (Death)
  Sender: FDA-Public Use
  Company Number: None

PATIENT
  Age: 59 Year
  Sex: Male
  Weight: 58.6 kg

DRUGS (3)
  1. ERBITUX [Suspect]
     Active Substance: CETUXIMAB
  2. CARBOPLATIN. [Suspect]
     Active Substance: CARBOPLATIN
  3. TAXOL [Suspect]
     Active Substance: PACLITAXEL

REACTIONS (12)
  - Pulmonary alveolar haemorrhage [None]
  - Pneumonia [None]
  - Haemoptysis [None]
  - Cerebral infarction [None]
  - Peripheral artery thrombosis [None]
  - Anaemia [None]
  - Aphasia [None]
  - Hemiparesis [None]
  - Pulmonary embolism [None]
  - Haemorrhage [None]
  - Diastolic dysfunction [None]
  - Fluid overload [None]

NARRATIVE: CASE EVENT DATE: 20140820
